FAERS Safety Report 6035199-7 (Version None)
Quarter: 2009Q1

REPORT INFORMATION
  Report Type: 
  Country: None (occurrence: None)
  Receive Date: 20090109
  Receipt Date: 20081229
  Transmission Date: 20090719
  Serious: Yes (Hospitalization)
  Sender: FDA-Public Use
  Company Number: IPS_01364_2008

PATIENT
  Sex: Female
  Weight: 60 kg

DRUGS (5)
  1. APO-GO   (APOMORPHINE HYDROCHLORIDE) (NOT SPECIFIED) [Suspect]
     Indication: PARKINSON'S DISEASE
     Dosage: (6 MG PER HOUR [FROM 08.00 H. TO 01:00 H. DAILY] SUBCUTANEOUS)
     Route: 058
     Dates: start: 20080626
  2. CARBIDOPA + LEVODOPA [Concomitant]
  3. SIFROL [Concomitant]
  4. STALEVO 100 [Concomitant]
  5. MIRTAZAPINE [Concomitant]

REACTIONS (2)
  - FALL [None]
  - HIP FRACTURE [None]
